FAERS Safety Report 22145329 (Version 2)
Quarter: 2023Q2

REPORT INFORMATION
  Report Type: Spontaneous
  Country: US (occurrence: US)
  Receive Date: 20230328
  Receipt Date: 20230511
  Transmission Date: 20230722
  Serious: No
  Sender: FDA-Public Use
  Company Number: US-009507513-2303USA007835

PATIENT
  Age: 18 Year
  Sex: Male
  Weight: 44.8 kg

DRUGS (1)
  1. KEYTRUDA [Suspect]
     Active Substance: PEMBROLIZUMAB
     Indication: Acute lymphocytic leukaemia
     Dosage: UNK, Q3W
     Route: 042
     Dates: start: 20230320, end: 20230320

REACTIONS (3)
  - Inappropriate schedule of product administration [Unknown]
  - Product use in unapproved indication [Unknown]
  - No adverse event [Unknown]

NARRATIVE: CASE EVENT DATE: 20230320
